FAERS Safety Report 4309940-5 (Version None)
Quarter: 2004Q1

REPORT INFORMATION
  Report Type: 
  Country: None (occurrence: None)
  Receive Date: 20040227
  Receipt Date: 20040121
  Transmission Date: 20041129
  Serious: No
  Sender: FDA-Public Use
  Company Number: MPS1-10153

PATIENT
  Age: 4 Year
  Sex: Female
  Weight: 17.5 kg

DRUGS (7)
  1. ALDURAZYME [Suspect]
     Indication: MUCOPOLYSACCHARIDOSIS I
     Dosage: 11.55 MG QWK IV
     Dates: start: 20031007
  2. ATARAX [Concomitant]
  3. TYLENOL (CAPLET) [Concomitant]
  4. CAPTOPRIL [Concomitant]
  5. NITRO PATCH [Concomitant]
  6. ALBUTEROL [Concomitant]
  7. ATROVENT [Concomitant]

REACTIONS (2)
  - PYREXIA [None]
  - URTICARIA [None]
